FAERS Safety Report 5090901-6 (Version None)
Quarter: 2006Q3

REPORT INFORMATION
  Report Type: 
  Country: None (occurrence: None)
  Receive Date: 20060823
  Receipt Date: 20060812
  Transmission Date: 20061208
  Serious: Yes (Other)
  Sender: FDA-Public Use
  Company Number: 2006099288

PATIENT
  Age: 85 Year
  Sex: Female
  Weight: 81.6475 kg

DRUGS (12)
  1. LYRICA [Suspect]
     Indication: DIABETIC NEUROPATHY
     Dosage: 75 MG (75 MG, 1 IN 1 D)
     Dates: start: 20060101
  2. BACITRACIN [Suspect]
     Indication: EYE INFECTION BACTERIAL
     Dosage: OPHTHALMIC
     Route: 047
     Dates: start: 20060801
  3. ALPHAGAN [Suspect]
     Indication: GLAUCOMA
     Dosage: OPHTHALMIC
     Route: 047
     Dates: end: 20060801
  4. LOTREL [Concomitant]
  5. SYNTHROID [Concomitant]
  6. ZOCOR [Concomitant]
  7. PROTONIX [Concomitant]
  8. NOVOLIN N [Concomitant]
  9. OXYGEN [Concomitant]
  10. MAG-OX (MAGNESIUM OXIDE) [Concomitant]
  11. LORAZEPAM [Concomitant]
  12. FUROSEMIDE [Concomitant]

REACTIONS (6)
  - DRUG INEFFECTIVE [None]
  - EYE INFECTION BACTERIAL [None]
  - ILL-DEFINED DISORDER [None]
  - MACULAR DEGENERATION [None]
  - OCULAR HYPERAEMIA [None]
  - VISION BLURRED [None]
